FAERS Safety Report 9746531 (Version 1)
Quarter: 2013Q4

REPORT INFORMATION
  Report Type: Spontaneous
  Country: GB (occurrence: GB)
  Receive Date: 20131211
  Receipt Date: 20131211
  Transmission Date: 20140711
  Serious: Yes (Death, Hospitalization)
  Sender: FDA-Public Use
  Company Number: GB-TEVA-449122ISR

PATIENT
  Age: 47 Year
  Sex: Female
  Weight: 157 kg

DRUGS (15)
  1. MYCOPHENOLIC ACID [Suspect]
     Indication: INTERSTITIAL LUNG DISEASE
     Route: 048
     Dates: start: 20130515, end: 20130829
  2. PREDNISOLONE [Suspect]
     Dosage: UP TO 30MG ONCE DAILY (VARYING DOSES DEPENDING ON SEVERITY OF LUNG DISEASE).
     Route: 048
     Dates: start: 201202
  3. STELARA [Suspect]
     Indication: PSORIASIS
     Dosage: THE 90 MILLIGRAM DOSE WAS INITIATED DUE TO PATIENT WEIGHING OVER 100KG.
     Route: 058
     Dates: start: 20130717, end: 20130823
  4. ALENDRONIC ACID [Concomitant]
  5. SERETIDE [Concomitant]
  6. LEVOTHYROXINE [Concomitant]
  7. OMEPRAZOLE [Concomitant]
  8. SERTRALINE [Concomitant]
  9. URSODEOXYCHOLIC ACID [Concomitant]
  10. NAPROXEN [Concomitant]
  11. CODEINE PHOSPHATE [Concomitant]
  12. KETOROLAC [Concomitant]
  13. MAXITROL [Concomitant]
  14. PROPRANOLOL [Concomitant]
  15. CALCICHEW D3 [Concomitant]

REACTIONS (7)
  - Encephalitis [Fatal]
  - Status epilepticus [Fatal]
  - Septic arthritis staphylococcal [Unknown]
  - Respiratory failure [Unknown]
  - Convulsion [Unknown]
  - Candida infection [Unknown]
  - Brain oedema [Unknown]
